FAERS Safety Report 25280580 (Version 2)
Quarter: 2025Q2

REPORT INFORMATION
  Report Type: Report from Study
  Country: US (occurrence: US)
  Receive Date: 20250508
  Receipt Date: 20250530
  Transmission Date: 20250716
  Serious: Yes (Other)
  Sender: ABBVIE
  Company Number: US-ABBVIE-6265999

PATIENT
  Age: 78 Year
  Sex: Male
  Weight: 92.986 kg

DRUGS (15)
  1. SKYRIZI [Suspect]
     Active Substance: RISANKIZUMAB-RZAA
     Indication: Psoriasis
     Dosage: FORM STRENGTH:  150 MILLIGRAM
     Route: 058
     Dates: start: 20210318
  2. PANTOPRAZOLE [Concomitant]
     Active Substance: PANTOPRAZOLE
     Indication: Gastrooesophageal reflux disease
  3. FISH OIL [Concomitant]
     Active Substance: FISH OIL
     Indication: Supplementation therapy
  4. METOPROLOL [Concomitant]
     Active Substance: METOPROLOL
     Indication: Hypertension
  5. CLOPIDOGREL [Concomitant]
     Active Substance: CLOPIDOGREL BISULFATE
     Indication: Anticoagulant therapy
  6. RANEXA [Concomitant]
     Active Substance: RANOLAZINE
     Indication: Angina pectoris
  7. ZINC [Concomitant]
     Active Substance: ZINC
     Indication: Mineral supplementation
  8. ASPIRIN [Concomitant]
     Active Substance: ASPIRIN
     Indication: Arterial occlusive disease
  9. ROSUVASTATIN [Concomitant]
     Active Substance: ROSUVASTATIN
     Indication: Blood cholesterol increased
  10. IRON [Concomitant]
     Active Substance: IRON
     Indication: Blood iron decreased
  11. VITAMIN C [Concomitant]
     Active Substance: ASCORBIC ACID
     Indication: Product used for unknown indication
  12. VITAMIN D [Concomitant]
     Active Substance: VITAMIN D NOS
     Indication: Vitamin supplementation
  13. COENZYME Q10 [Concomitant]
     Active Substance: DIETARY SUPPLEMENT\UBIDECARENONE
     Indication: Enzyme supplementation
  14. ISOSORBIDE [Concomitant]
     Active Substance: ISOSORBIDE
     Indication: Product used for unknown indication
  15. LEVOTHYROXINE [Concomitant]
     Active Substance: LEVOTHYROXINE
     Indication: Hypothyroidism

REACTIONS (3)
  - Neuralgia [Recovered/Resolved]
  - Nerve compression [Recovered/Resolved]
  - Gait disturbance [Recovered/Resolved]

NARRATIVE: CASE EVENT DATE: 20230101
